FAERS Safety Report 8548472-5 (Version None)
Quarter: 2012Q3

REPORT INFORMATION
  Report Type: 
  Country: None (occurrence: None)
  Receive Date: 20120717
  Receipt Date: 20120705
  Transmission Date: 20120928
  Serious: Yes (Hospitalization)
  Sender: FDA-Public Use
  Company Number: 2012MA008488

PATIENT
  Age: 82 Year
  Sex: Female

DRUGS (11)
  1. FOLIC ACID [Concomitant]
  2. NAPROXEN [Suspect]
     Indication: ARTHRITIS
     Dosage: 500 MG;BID;PO
     Route: 048
     Dates: end: 20120617
  3. DOUBLEBASE [Concomitant]
  4. ACETAMINOPHEN AND CODEINE PHOSPHATE [Concomitant]
  5. HYPROMELLOSE [Concomitant]
  6. CITALOPRAM HYDROBROMIDE [Concomitant]
  7. MOVELAT (MOVELAT) [Suspect]
     Indication: ARTHRITIS
     Dosage: TID;TOP
     Route: 061
     Dates: start: 20120601, end: 20120620
  8. ASPIRIN [Suspect]
     Dosage: 75 MG;QD;PO
     Route: 048
  9. ALENDRONATE SODIUM [Concomitant]
  10. LAXIDO [Concomitant]
  11. OMEPRAZOLE [Concomitant]

REACTIONS (5)
  - GASTROINTESTINAL HAEMORRHAGE [None]
  - CARDIAC FAILURE [None]
  - ABDOMINAL PAIN [None]
  - MYOCARDIAL INFARCTION [None]
  - HAEMOGLOBIN DECREASED [None]
